FAERS Safety Report 8456607 (Version 3)
Quarter: 2013Q4

REPORT INFORMATION
  Report Type: Spontaneous
  Country: JP (occurrence: JP)
  Receive Date: 20120307
  Receipt Date: 20131216
  Transmission Date: 20140711
  Serious: Yes (Life-Threatening, Other)
  Sender: FDA-Public Use
  Company Number: 2012SP000240

PATIENT
  Age: 40 Year
  Sex: Female
  Weight: 46 kg

DRUGS (1)
  1. FOSPHENYTOIN SODIUM [Suspect]
     Indication: EPILEPSY
     Route: 042
     Dates: start: 20120306, end: 20120306

REACTIONS (2)
  - Respiratory arrest [Recovered/Resolved]
  - Blood pressure decreased [Recovered/Resolved]
